FAERS Safety Report 16647315 (Version 1)
Quarter: 2019Q3

REPORT INFORMATION
  Report Type: Spontaneous
  Country: US (occurrence: US)
  Receive Date: 20190730
  Receipt Date: 20190730
  Transmission Date: 20191004
  Serious: No
  Sender: FDA-Public Use
  Company Number: US-PFIZER INC-2019322563

PATIENT
  Age: 85 Year
  Sex: Male
  Weight: 90.26 kg

DRUGS (1)
  1. XAL-EASE [Suspect]
     Active Substance: DEVICE
     Indication: GLAUCOMA
     Dosage: UNK

REACTIONS (1)
  - Tremor [Unknown]
